FAERS Safety Report 7229169-0 (Version None)
Quarter: 2011Q1

REPORT INFORMATION
  Report Type: 
  Country: None (occurrence: None)
  Receive Date: 20110117
  Receipt Date: 20110112
  Transmission Date: 20110831
  Serious: Yes (Death)
  Sender: FDA-Public Use
  Company Number: AU-PFIZER INC-2010173218

PATIENT
  Age: 56 Year
  Sex: Female

DRUGS (5)
  1. PROMETHAZINE [Interacting]
     Dosage: 1.3 MG/L, UNK
  2. METOCLOPRAMIDE HCL [Interacting]
     Dosage: 0.4 MG/L, UNK
  3. MORPHINE HCL ELIXIR [Interacting]
     Dosage: 0.4 MG/L, UNK
  4. SERTRALINE HYDROCHLORIDE [Suspect]
     Dosage: 2.3 MG/L, UNK
  5. TRAMADOL [Interacting]
     Dosage: 2.2 MG/L, UNK

REACTIONS (2)
  - DRUG INTERACTION [None]
  - DEATH [None]
